FAERS Safety Report 8369466-9 (Version None)
Quarter: 2012Q2

REPORT INFORMATION
  Report Type: 
  Country: None (occurrence: None)
  Receive Date: 20120518
  Receipt Date: 20120514
  Transmission Date: 20120825
  Serious: Yes (Other)
  Sender: FDA-Public Use
  Company Number: US-PFIZER INC-2012117317

PATIENT
  Sex: Male
  Weight: 78.458 kg

DRUGS (9)
  1. PRILOSEC [Concomitant]
     Indication: GASTROOESOPHAGEAL REFLUX DISEASE
     Dosage: 20 MG, DAILY
  2. ASPIRIN [Concomitant]
     Dosage: 81 MG, DAILY
  3. DOXYCYCLINE [Concomitant]
     Indication: ERYTHEMA
  4. LIPITOR [Suspect]
     Dosage: 40 MG, DAILY
     Dates: end: 20120101
  5. ALTACE [Concomitant]
     Indication: CARDIAC DISORDER
     Dosage: 2.5 MG, DAILY
  6. ATORVASTATIN CALCIUM [Suspect]
     Indication: BLOOD CHOLESTEROL ABNORMAL
     Dosage: 40 MG, DAILY
     Dates: start: 20120101
  7. METOPROLOL [Concomitant]
     Indication: CARDIAC DISORDER
     Dosage: 25 MG, 2X/DAY
  8. DOXYCYCLINE [Concomitant]
     Indication: FLUSHING
     Dosage: 1000 MG, DAILY
  9. LIPITOR [Suspect]
     Indication: BLOOD CHOLESTEROL ABNORMAL
     Dosage: UNK

REACTIONS (5)
  - PAIN IN EXTREMITY [None]
  - GAIT DISTURBANCE [None]
  - DIZZINESS [None]
  - BALANCE DISORDER [None]
  - MUSCULAR WEAKNESS [None]
